FAERS Safety Report 9230027 (Version 1)
Quarter: 2013Q1

REPORT INFORMATION
  Report Type: Spontaneous
  Country: US (occurrence: None)
  Receive Date: 20121119
  Receipt Date: 20121119
  Transmission Date: 20140127
  Serious: No
  Sender: FDA-Public Use
  Company Number: CART-1000077

PATIENT
  Age: 46 Year
  Sex: Male

DRUGS (1)
  1. CARTICEL [Suspect]
     Indication: CARTILAGE INJURY
     Route: 014
     Dates: start: 20110315, end: 20110315

REACTIONS (1)
  - Arthralgia [None]
